FAERS Safety Report 7095587-7 (Version None)
Quarter: 2010Q4

REPORT INFORMATION
  Report Type: 
  Country: None (occurrence: None)
  Receive Date: 20101111
  Receipt Date: 20101102
  Transmission Date: 20110411
  Serious: Yes (Death, Other)
  Sender: FDA-Public Use
  Company Number: JP-AMGEN-JPNCT2010003136

PATIENT

DRUGS (14)
  1. PANITUMUMAB [Suspect]
     Indication: COLORECTAL CANCER
     Dosage: 6 MG/KG, Q2WK
     Route: 041
     Dates: start: 20100915, end: 20101013
  2. BLOPRESS [Concomitant]
     Dosage: UNK
     Route: 048
  3. DELUX-C [Concomitant]
     Dosage: UNK
     Route: 048
  4. MIYA-BM [Concomitant]
     Dosage: UNK
     Route: 048
  5. LOXONIN [Concomitant]
     Dosage: UNK
     Route: 048
  6. CYTOTEC [Concomitant]
     Dosage: UNK
     Route: 048
  7. ZANTAC [Concomitant]
     Route: 042
  8. POLARAMINE [Concomitant]
     Route: 042
  9. DEXART [Concomitant]
     Route: 042
  10. LASIX [Concomitant]
     Route: 048
  11. ALDACTONE [Concomitant]
     Route: 048
  12. GULUCOLIN S [Concomitant]
     Route: 042
  13. ANTIHISTAMINES [Concomitant]
     Indication: PROPHYLAXIS
     Route: 065
  14. CORTICOSTEROIDS [Concomitant]
     Indication: PROPHYLAXIS
     Route: 065

REACTIONS (7)
  - ATRIAL FIBRILLATION [None]
  - CEREBRAL INFARCTION [None]
  - DERMATITIS [None]
  - DERMATITIS ACNEIFORM [None]
  - INFUSION RELATED REACTION [None]
  - MULTI-ORGAN FAILURE [None]
  - SPINAL COMPRESSION FRACTURE [None]
